FAERS Safety Report 7463653-X (Version None)
Quarter: 2011Q2

REPORT INFORMATION
  Report Type: 
  Country: None (occurrence: None)
  Receive Date: 20110506
  Receipt Date: 20110503
  Transmission Date: 20111010
  Serious: Yes (Other)
  Sender: FDA-Public Use
  Company Number: BR-PFIZER INC-2011041257

PATIENT
  Age: 81 Year
  Sex: Male
  Weight: 87 kg

DRUGS (11)
  1. VARENICLINE TARTRATE [Suspect]
     Dosage: 0.5 MG, 2X/DAY
     Dates: start: 20110201, end: 20110410
  2. OMEPRAZOL [Concomitant]
     Indication: GASTRITIS
     Dosage: 20 MG, 1X/DAY
     Dates: start: 19990101
  3. SECOTEX [Concomitant]
     Indication: PROSTATOMEGALY
     Dosage: 0.4 MG, 1X/DAY
  4. VYTORIN [Concomitant]
     Indication: BLOOD CHOLESTEROL INCREASED
  5. OMEPRAZOL [Concomitant]
     Indication: DUODENITIS
  6. CYMBALTA [Concomitant]
     Indication: DEPRESSION
     Dosage: 60 MG, 1X/DAY
     Dates: start: 20101201
  7. VYTORIN [Concomitant]
     Indication: BLOOD TRIGLYCERIDES INCREASED
     Dosage: UNK
     Dates: start: 20090101
  8. LOSARTAN POTASSIUM [Concomitant]
     Indication: HYPERTENSION
     Dosage: 50 MG, 1X/DAY
     Dates: start: 20060101
  9. VARENICLINE TARTRATE [Suspect]
     Indication: TOBACCO USER
     Dosage: UNK MG, 2X/DAY
     Route: 048
     Dates: start: 20110202, end: 20110201
  10. FINASTERIDE [Concomitant]
     Indication: PROSTATOMEGALY
     Dosage: 5 MG, UNK
     Dates: start: 20101201
  11. RIVOTRIL [Concomitant]
     Indication: INSOMNIA
     Dosage: UNK

REACTIONS (2)
  - DEPRESSED MOOD [None]
  - TOXICITY TO VARIOUS AGENTS [None]
